FAERS Safety Report 7991022-2 (Version None)
Quarter: 2011Q4

REPORT INFORMATION
  Report Type: 
  Country: None (occurrence: None)
  Receive Date: 20111219
  Receipt Date: 20111205
  Transmission Date: 20120403
  Serious: Yes (Other)
  Sender: FDA-Public Use
  Company Number: US-ROCHE-1019904

PATIENT
  Sex: Female

DRUGS (3)
  1. PEGINTERFERON ALFA-2A [Suspect]
     Indication: HEPATITIS C
     Dates: start: 20110909
  2. COPEGUS [Suspect]
     Indication: HEPATITIS C
     Dates: start: 20110909
  3. BOCEPREVIR [Suspect]
     Indication: HEPATITIS C
     Dates: start: 20111007

REACTIONS (11)
  - RED BLOOD CELL COUNT DECREASED [None]
  - NAUSEA [None]
  - MIDDLE INSOMNIA [None]
  - SCRATCH [None]
  - UNEVALUABLE EVENT [None]
  - INJECTION SITE MASS [None]
  - DYSPNOEA [None]
  - DIZZINESS [None]
  - WHITE BLOOD CELL COUNT DECREASED [None]
  - ASTHENIA [None]
  - FEELING ABNORMAL [None]
